FAERS Safety Report 25611206 (Version 1)
Quarter: 2025Q3

REPORT INFORMATION
  Report Type: Spontaneous
  Country: US (occurrence: None)
  Receive Date: 20250725
  Receipt Date: 20250725
  Transmission Date: 20251020
  Serious: No
  Sender: FDA-CTU
  Company Number: None

PATIENT
  Age: 30 Year
  Sex: Female
  Weight: 116.1 kg

DRUGS (15)
  1. ZEPBOUND [Suspect]
     Active Substance: TIRZEPATIDE
     Indication: Weight decreased
     Dosage: OTHER QUANTITY : 1 INJECTION(S);?OTHER FREQUENCY : ONCE WEEKLY;?OTHER ROUTE : SUBCUTANEOUS;?
     Route: 050
     Dates: start: 20250501
  2. Clindamycin phosphate solution apply topically once daily for Hidraden [Concomitant]
  3. ; Triamcinolone ointment 0.1% ointment apply BID to affected area for [Concomitant]
  4. Hibiclens solution wash affected area BID for Hidradenitis suppuritiva [Concomitant]
  5. CPAP machine nightly for Sleep apnea [Concomitant]
  6. Zepbound injection 0.5 mL under the skin once weekly for weight loss [Concomitant]
  7. Cetirizine 10 mg QHS for allergies [Concomitant]
  8. Famotidine 10 mg QHS for acid reflux [Concomitant]
  9. Vitamin B12 capsule QHS [Concomitant]
  10. Women^s daily multivitamin QHS [Concomitant]
  11. Biotin capsule QHS [Concomitant]
  12. Excedrin migraine once daily as needed for migrai [Concomitant]
  13. ibuprofen as needed for pain [Concomitant]
  14. acetaminophen as needed for pain [Concomitant]
  15. calcium carbonate chewable tablets as needed for acid reflux [Concomitant]

REACTIONS (5)
  - Malaise [None]
  - Fatigue [None]
  - Depressed mood [None]
  - Apathy [None]
  - Pain [None]

NARRATIVE: CASE EVENT DATE: 20250725
